FAERS Safety Report 15897277 (Version 2)
Quarter: 2019Q3

REPORT INFORMATION
  Report Type: Spontaneous
  Country: DE (occurrence: DE)
  Receive Date: 20190131
  Receipt Date: 20190723
  Transmission Date: 20191004
  Serious: Yes (Death, Other)
  Sender: FDA-Public Use
  Company Number: DE-IMPAX LABORATORIES, LLC-2019-IPXL-00352

PATIENT
  Age: 8 Month
  Weight: 8 kg

DRUGS (1)
  1. ADRENACLICK [Suspect]
     Active Substance: EPINEPHRINE
     Indication: PRODUCT USED FOR UNKNOWN INDICATION
     Dosage: 250 MICROGRAM/KILOGRAM, INTRA-OSSEOUS
     Route: 050

REACTIONS (2)
  - Overdose [Fatal]
  - Medication error [Fatal]
